FAERS Safety Report 7624618-8 (Version None)
Quarter: 2011Q3

REPORT INFORMATION
  Report Type: 
  Country: None (occurrence: None)
  Receive Date: 20110720
  Receipt Date: 20110718
  Transmission Date: 20111222
  Serious: Yes (Hospitalization)
  Sender: FDA-Public Use
  Company Number: FR-PFIZER INC-2011161620

PATIENT
  Age: 74 Year
  Sex: Male

DRUGS (14)
  1. SOLU-MEDROL [Suspect]
     Dosage: UNK
     Route: 042
     Dates: start: 20110401, end: 20110401
  2. VASTAREL [Concomitant]
  3. ADANCOR [Concomitant]
  4. ATORVASTATIN CALCIUM [Concomitant]
     Dosage: UNK
  5. ATENOLOL [Concomitant]
  6. OMEPRAZOLE [Concomitant]
  7. PERINDOPRIL ERBUMINE [Concomitant]
  8. AZATHIOPRINE SODIUM [Suspect]
     Indication: POLYMYOSITIS
     Dosage: UNK
     Route: 048
     Dates: start: 20110501, end: 20110601
  9. STABLON [Concomitant]
  10. IMOVANE [Concomitant]
  11. PREDNISOLONE [Suspect]
     Indication: POLYMYOSITIS
     Dosage: UNK
     Route: 048
     Dates: start: 20100801, end: 20110601
  12. SOLU-MEDROL [Suspect]
     Indication: POLYMYOSITIS
     Dosage: 1 G, 1X/DAY
     Route: 042
     Dates: start: 20110401, end: 20110401
  13. ASPIRIN [Concomitant]
  14. PREVISCAN [Concomitant]

REACTIONS (2)
  - ACUTE FEBRILE NEUTROPHILIC DERMATOSIS [None]
  - FOLLICULITIS [None]
